FAERS Safety Report 5589004-3 (Version None)
Quarter: 2008Q1

REPORT INFORMATION
  Report Type: 
  Country: None (occurrence: None)
  Receive Date: 20080111
  Receipt Date: 20080102
  Transmission Date: 20080703
  Serious: Yes (Hospitalization, Other)
  Sender: FDA-Public Use
  Company Number: DE-ABBOTT-08P-062-0432278-00

PATIENT
  Sex: Male
  Weight: 78 kg

DRUGS (6)
  1. HUMIRA [Suspect]
     Indication: SPONDYLOARTHROPATHY
     Route: 058
     Dates: start: 20060601
  2. HUMIRA [Suspect]
     Indication: ANKYLOSING SPONDYLITIS
  3. METAMIZOLE MAGNESIUM [Concomitant]
     Indication: ANKYLOSING SPONDYLITIS
     Route: 048
  4. CELECOXIB [Concomitant]
     Indication: ANKYLOSING SPONDYLITIS
     Route: 048
  5. INEGY [Concomitant]
     Indication: HYPERLIPIDAEMIA
     Route: 048
  6. LUMIRACOXIBE [Concomitant]
     Indication: ANKYLOSING SPONDYLITIS
     Route: 048

REACTIONS (4)
  - ACCIDENT AT WORK [None]
  - LIGAMENT RUPTURE [None]
  - ROTATOR CUFF SYNDROME [None]
  - TENDON RUPTURE [None]
